FAERS Safety Report 10017168 (Version 1)
Quarter: 2014Q1

REPORT INFORMATION
  Report Type: Spontaneous
  Country: US (occurrence: US)
  Receive Date: 20140318
  Receipt Date: 20140318
  Transmission Date: 20141002
  Serious: No
  Sender: FDA-Public Use
  Company Number: US-009507513-1402USA012810

PATIENT
  Age: 3 Year
  Sex: Female

DRUGS (1)
  1. PEGINTRON [Suspect]
     Indication: BRAIN NEOPLASM
     Dosage: 50MCG/0.5ML 20 MICROGRAM, QW, REDIPEN
     Dates: start: 20140207

REACTIONS (3)
  - Pyrexia [Recovered/Resolved]
  - Medication error [Unknown]
  - Product quality issue [Unknown]
